FAERS Safety Report 7231162-9 (Version None)
Quarter: 2011Q1

REPORT INFORMATION
  Report Type: 
  Country: None (occurrence: None)
  Receive Date: 20110118
  Receipt Date: 20110103
  Transmission Date: 20110831
  Serious: Yes (Hospitalization)
  Sender: FDA-Public Use
  Company Number: A0775101A

PATIENT
  Sex: Male
  Weight: 98.6 kg

DRUGS (5)
  1. AMARYL [Concomitant]
  2. VERAPAMIL [Concomitant]
  3. ZOCOR [Concomitant]
  4. TRICOR [Concomitant]
  5. AVANDIA [Suspect]
     Dosage: 4MG PER DAY
     Route: 048
     Dates: start: 20000523, end: 20100101

REACTIONS (5)
  - APHASIA [None]
  - AORTIC STENOSIS [None]
  - CORONARY ARTERY DISEASE [None]
  - CARDIAC FAILURE CONGESTIVE [None]
  - CEREBROVASCULAR ACCIDENT [None]
